FAERS Safety Report 9092950 (Version 1)
Quarter: 2013Q1

REPORT INFORMATION
  Report Type: Report from Study
  Country: US (occurrence: US)
  Receive Date: 20130201
  Receipt Date: 20130201
  Transmission Date: 20140127
  Serious: No
  Sender: FDA-Public Use
  Company Number: US-ABBOTT-12P-163-1026562-00

PATIENT
  Age: 57 Year
  Sex: Female

DRUGS (4)
  1. HUMIRA [Suspect]
     Indication: CROHN^S DISEASE
     Dates: start: 20121019
  2. VITAMIN D [Concomitant]
     Indication: VITAMIN SUPPLEMENTATION
     Dosage: WEEKLY
  3. B-12 [Concomitant]
     Indication: VITAMIN SUPPLEMENTATION
     Dosage: MONTHLY
  4. HYDROCHLOROTHIAZIDE [Concomitant]
     Indication: BLOOD PRESSURE INCREASED
     Dosage: 25 MG DAILY

REACTIONS (6)
  - Blood iron decreased [Unknown]
  - Diarrhoea [Recovering/Resolving]
  - Defaecation urgency [Unknown]
  - Fatigue [Unknown]
  - Local swelling [Unknown]
  - Oedema peripheral [Unknown]
